FAERS Safety Report 10183112 (Version 3)
Quarter: 2014Q3

REPORT INFORMATION
  Report Type: Report from Study
  Country: DE (occurrence: DE)
  Receive Date: 20140520
  Receipt Date: 20140714
  Transmission Date: 20150326
  Serious: Yes (Hospitalization, Other)
  Sender: FDA-Public Use
  Company Number: DE-BAYER-2014-069449

PATIENT
  Age: 32 Year
  Sex: Female
  Weight: 60 kg

DRUGS (3)
  1. BETAFERON [Suspect]
     Active Substance: INTERFERON BETA-1B
     Indication: RELAPSING-REMITTING MULTIPLE SCLEROSIS
     Dosage: UNK
     Dates: start: 200504, end: 201302
  2. CITALOPRAM [Concomitant]
     Active Substance: CITALOPRAM HYDROBROMIDE
     Indication: DEPRESSION
     Dosage: 15 MG, UNK
  3. BETAFERON [Suspect]
     Active Substance: INTERFERON BETA-1B
     Indication: RELAPSING-REMITTING MULTIPLE SCLEROSIS
     Dosage: 187.5 ?G, QOD
     Route: 058
     Dates: start: 20140401

REACTIONS (10)
  - Asthenia [None]
  - Vertigo [None]
  - General physical health deterioration [None]
  - Exposure during pregnancy [None]
  - Coordination abnormal [Recovered/Resolved]
  - Nausea [Recovered/Resolved]
  - Injection site reaction [Recovering/Resolving]
  - Vertigo positional [Recovered/Resolved]
  - Premature rupture of membranes [None]
  - Hemiparesis [None]

NARRATIVE: CASE EVENT DATE: 20140509
